FAERS Safety Report 4392152-7 (Version None)
Quarter: 2004Q3

REPORT INFORMATION
  Report Type: 
  Country: None (occurrence: None)
  Receive Date: 20040702
  Receipt Date: 20040206
  Transmission Date: 20050211
  Serious: Yes (Other)
  Sender: FDA-Public Use
  Company Number: 2004UW02114

PATIENT
  Age: 63 Year
  Sex: Female

DRUGS (2)
  1. CRESTOR [Suspect]
     Indication: BLOOD CHOLESTEROL INCREASED
  2. ZETIA [Suspect]

REACTIONS (8)
  - CHEST PAIN [None]
  - DRUG INEFFECTIVE [None]
  - IRRITABILITY [None]
  - PANIC ATTACK [None]
  - PERSONALITY DISORDER [None]
  - PSYCHOMOTOR HYPERACTIVITY [None]
  - STOMACH DISCOMFORT [None]
  - TACHYCARDIA [None]
